FAERS Safety Report 4972196-4 (Version None)
Quarter: 2006Q2

REPORT INFORMATION
  Report Type: 
  Country: None (occurrence: None)
  Receive Date: 20060413
  Receipt Date: 20060206
  Transmission Date: 20061013
  Serious: Yes (Disabling)
  Sender: FDA-Public Use
  Company Number: JP-JPN-A200600483

PATIENT
  Age: 33 Year
  Sex: Female
  Weight: 57 kg

DRUGS (7)
  1. ZIAGEN [Suspect]
     Indication: HIV INFECTION
     Dosage: 300MG TWICE PER DAY
     Route: 048
     Dates: start: 20060119, end: 20060301
  2. RETROVIR [Suspect]
     Dosage: 200MG TWICE PER DAY
     Route: 048
     Dates: start: 20001101
  3. STOCRIN [Suspect]
     Dosage: 600MG PER DAY
     Route: 048
     Dates: start: 20060119
  4. VIDEX [Concomitant]
     Indication: HIV INFECTION
     Route: 048
     Dates: start: 20060302
  5. EPIVIR [Concomitant]
     Indication: HIV INFECTION
     Dosage: 300MG PER DAY
     Route: 048
     Dates: start: 20001101, end: 20060118
  6. VIRACEPT [Concomitant]
     Indication: HIV INFECTION
     Route: 048
     Dates: start: 20001101, end: 20060118
  7. DIDANOSINE [Concomitant]
     Route: 065

REACTIONS (13)
  - ANOREXIA [None]
  - DECREASED APPETITE [None]
  - HEADACHE [None]
  - INSOMNIA [None]
  - LIVER DISORDER [None]
  - NAUSEA [None]
  - PIGMENTATION DISORDER [None]
  - PRURITUS [None]
  - RASH [None]
  - RASH GENERALISED [None]
  - RASH PRURITIC [None]
  - TOXIC SKIN ERUPTION [None]
  - WEIGHT DECREASED [None]
